FAERS Safety Report 8593532 (Version 3)
Quarter: 2013Q2

REPORT INFORMATION
  Report Type: Report from Study
  Country: CA (occurrence: CA)
  Receive Date: 20120604
  Receipt Date: 20130419
  Transmission Date: 20140414
  Serious: Yes (Death)
  Sender: FDA-Public Use
  Company Number: PHHY2012CA046890

PATIENT
  Sex: Male

DRUGS (1)
  1. CLOZARIL [Suspect]
     Indication: SCHIZOPHRENIA, PARANOID TYPE
     Dosage: 425 MG, (50 MG MORNING, 50MG IN NOON AND 325 MG IN HS)
     Route: 048
     Dates: start: 20040217

REACTIONS (2)
  - Completed suicide [Fatal]
  - Intentional overdose [Fatal]
